FAERS Safety Report 9326398 (Version 1)
Quarter: 2013Q2

REPORT INFORMATION
  Report Type: Spontaneous
  Country: US (occurrence: US)
  Receive Date: 20130604
  Receipt Date: 20130604
  Transmission Date: 20140414
  Serious: Yes (Other)
  Sender: FDA-Public Use
  Company Number: US-ELI_LILLY_AND_COMPANY-US201305009520

PATIENT
  Age: 45 Year
  Sex: Male

DRUGS (3)
  1. EFFIENT [Suspect]
     Dosage: 10 MG, UNKNOWN
     Route: 048
  2. HEPARIN [Concomitant]
  3. ASPIRIN [Concomitant]

REACTIONS (1)
  - Thrombosis [Unknown]
